FAERS Safety Report 25098887 (Version 1)
Quarter: 2025Q1

REPORT INFORMATION
  Report Type: Spontaneous
  Country: ES (occurrence: ES)
  Receive Date: 20250320
  Receipt Date: 20250320
  Transmission Date: 20250409
  Serious: Yes (Other)
  Sender: NOVARTIS
  Company Number: None

PATIENT
  Age: 44 Year
  Sex: Female

DRUGS (3)
  1. KISQALI [Suspect]
     Active Substance: RIBOCICLIB
     Indication: Breast neoplasm
     Dosage: 600 MG, Q24H
     Route: 048
     Dates: start: 20240726, end: 20241111
  2. LETROZOLE [Concomitant]
     Active Substance: LETROZOLE
     Indication: Breast neoplasm
     Dosage: 2.5 MG, Q24H
     Route: 048
     Dates: start: 20240726
  3. GOSERELIN [Concomitant]
     Active Substance: GOSERELIN
     Indication: Breast neoplasm
     Dosage: 3.6 MG, 28D
     Route: 058
     Dates: start: 20240726

REACTIONS (3)
  - Hepatocellular injury [Recovering/Resolving]
  - Neutropenia [Recovering/Resolving]
  - Condition aggravated [Recovering/Resolving]

NARRATIVE: CASE EVENT DATE: 20240808
